FAERS Safety Report 21995075 (Version 2)
Quarter: 2023Q1

REPORT INFORMATION
  Report Type: Report from Study
  Country: AR (occurrence: AR)
  Receive Date: 20230215
  Receipt Date: 20230322
  Transmission Date: 20230417
  Serious: Yes (Other)
  Sender: FDA-Public Use
  Company Number: AR-JNJFOC-20230232340

PATIENT
  Age: 61 Year
  Sex: Female
  Weight: 78 kg

DRUGS (1)
  1. SIMPONI [Suspect]
     Active Substance: GOLIMUMAB
     Indication: Rheumatoid arthritis
     Dosage: DOSE- 2MG/KG, FREQUENCY- 4 (WEEK)
     Route: 041
     Dates: start: 20220611

REACTIONS (1)
  - Laryngeal oedema [Unknown]
